FAERS Safety Report 11882953 (Version 3)
Quarter: 2016Q1

REPORT INFORMATION
  Report Type: Spontaneous
  Country: MX (occurrence: MX)
  Receive Date: 20151231
  Receipt Date: 20160215
  Transmission Date: 20160526
  Serious: Yes (Other)
  Sender: FDA-Public Use
  Company Number: MX-TAKEDA-2015MPI008770

PATIENT

DRUGS (1)
  1. VELCADE [Suspect]
     Active Substance: BORTEZOMIB
     Indication: PLASMA CELL MYELOMA
     Dosage: UNK
     Route: 065

REACTIONS (16)
  - Hypercalcaemia [Unknown]
  - Hepatitis B [Unknown]
  - Bone pain [Unknown]
  - Plasma cell myeloma [Unknown]
  - Hypertension [Unknown]
  - Renal failure [Unknown]
  - Pyrexia [Unknown]
  - Vomiting [Unknown]
  - Asthenia [Unknown]
  - Anaemia [Unknown]
  - Febrile neutropenia [Unknown]
  - Infection [Unknown]
  - Fatigue [Unknown]
  - Splenomegaly [Unknown]
  - Weight decreased [Unknown]
  - Hepatic failure [Unknown]
